FAERS Safety Report 14455343 (Version 2)
Quarter: 2018Q1

REPORT INFORMATION
  Report Type: Spontaneous
  Country: CN (occurrence: CN)
  Receive Date: 20180129
  Receipt Date: 20180202
  Transmission Date: 20180509
  Serious: Yes (Other)
  Sender: FDA-Public Use
  Company Number: CN-GILEAD-2018-0318230

PATIENT

DRUGS (5)
  1. VIREAD [Suspect]
     Active Substance: TENOFOVIR DISOPROXIL FUMARATE
     Dosage: UNK
     Route: 048
  2. HEPTODIN [Suspect]
     Active Substance: LAMIVUDINE
     Indication: HEPATITIS B
     Dosage: 1 DF(TABLET), QD
     Route: 048
  3. VIREAD [Suspect]
     Active Substance: TENOFOVIR DISOPROXIL FUMARATE
     Indication: HEPATITIS B
     Dosage: 1 DF(TABLET), QD
     Route: 048
  4. HEPSERA [Suspect]
     Active Substance: ADEFOVIR DIPIVOXIL
     Indication: HEPATITIS B
     Dosage: 1 DF(TABLET), QD
     Route: 048
  5. VIREAD [Suspect]
     Active Substance: TENOFOVIR DISOPROXIL FUMARATE
     Dosage: UNK
     Route: 048

REACTIONS (8)
  - Abdominal discomfort [Recovering/Resolving]
  - Myalgia [Recovering/Resolving]
  - Hepatic function abnormal [Recovered/Resolved]
  - Drug ineffective [Unknown]
  - Muscle tightness [Recovering/Resolving]
  - Frequent bowel movements [Recovering/Resolving]
  - Drug resistance [Unknown]
  - Alpha 1 foetoprotein increased [Recovered/Resolved]

NARRATIVE: CASE EVENT DATE: 2013
